FAERS Safety Report 14753039 (Version 1)
Quarter: 2020Q3

REPORT INFORMATION
  Report Type: Report from Study
  Country: IL (occurrence: IL)
  Receive Date: 20180412
  Receipt Date: 20180412
  Transmission Date: 20201104
  Serious: Yes (Hospitalization)
  Sender: FDA-Public Use
  Company Number: IL-JNJFOC-20150619609

PATIENT
  Age: 69 Year
  Sex: Male
  Weight: 80.7 kg

DRUGS (10)
  1. IBRUTINIB [Suspect]
     Active Substance: IBRUTINIB
     Route: 048
  2. IBRUTINIB [Suspect]
     Active Substance: IBRUTINIB
     Indication: DIFFUSE LARGE B-CELL LYMPHOMA
     Dosage: TIME (24HR CLOCK) OF IBRUTINIB/PLACEBO FIRST DOSE: 09:00,MOST RECENT DOSE:10:00??MED KIT NO: 15781
     Route: 048
     Dates: start: 20150511, end: 20150620
  3. RITUXIMAB. [Suspect]
     Active Substance: RITUXIMAB
     Indication: DIFFUSE LARGE B-CELL LYMPHOMA
     Dosage: TIME (24HR CLOCK) FIRST DOSE: 09:00,MOST RECENT DOSE:10:00
     Route: 042
     Dates: start: 20150510, end: 20150601
  4. CYCLOPHOSPHAMIDE. [Suspect]
     Active Substance: CYCLOPHOSPHAMIDE
     Indication: DIFFUSE LARGE B-CELL LYMPHOMA
     Dosage: TIME (24HR CLOCK) FIRST DOSE: 09:00,MOST RECENT DOSE:10:00
     Route: 042
     Dates: start: 20150510, end: 20150601
  5. DOXORUBICIN [Suspect]
     Active Substance: DOXORUBICIN
     Indication: DIFFUSE LARGE B-CELL LYMPHOMA
     Dosage: TIME (24HR CLOCK) FIRST DOSE: 09:00,MOST RECENT DOSE:10:00
     Route: 042
     Dates: start: 20150510, end: 20150601
  6. VINCRISTINE [Suspect]
     Active Substance: VINCRISTINE
     Indication: DIFFUSE LARGE B-CELL LYMPHOMA
     Dosage: TIME (24HR CLOCK) FIRST DOSE: 09:00,MOST RECENT DOSE:10:00
     Route: 042
     Dates: start: 20150510, end: 20150601
  7. PREDNISONE. [Suspect]
     Active Substance: PREDNISONE
     Indication: DIFFUSE LARGE B-CELL LYMPHOMA
     Dosage: TIME (24HR CLOCK) FIRST DOSE: 09:00,MOST RECENT DOSE:10:00
     Route: 048
     Dates: start: 20150510, end: 20150601
  8. TAZOCIN [Concomitant]
     Active Substance: PIPERACILLIN SODIUM\TAZOBACTAM SODIUM
     Indication: FEBRILE NEUTROPENIA
     Route: 048
     Dates: start: 20150518
  9. TAZOCIN [Concomitant]
     Active Substance: PIPERACILLIN SODIUM\TAZOBACTAM SODIUM
     Indication: FEBRILE NEUTROPENIA
     Route: 048
  10. EZETROL [Concomitant]
     Active Substance: EZETIMIBE
     Indication: HYPERLIPIDAEMIA
     Route: 048

REACTIONS (1)
  - Cerebral haemorrhage [Not Recovered/Not Resolved]

NARRATIVE: CASE EVENT DATE: 20150621
